FAERS Safety Report 8140235-8 (Version None)
Quarter: 2012Q1

REPORT INFORMATION
  Report Type: 
  Country: None (occurrence: None)
  Receive Date: 20120216
  Receipt Date: 20120206
  Transmission Date: 20120608
  Serious: No
  Sender: FDA-Public Use
  Company Number: US-BIOGENIDEC-2012BI000285

PATIENT
  Sex: Female

DRUGS (1)
  1. AVONEX [Suspect]
     Indication: MULTIPLE SCLEROSIS
     Route: 030
     Dates: start: 20070110

REACTIONS (19)
  - MUSCULOSKELETAL DISORDER [None]
  - DECREASED IMMUNE RESPONSIVENESS [None]
  - MUSCULAR WEAKNESS [None]
  - MULTIPLE SCLEROSIS RELAPSE [None]
  - BALANCE DISORDER [None]
  - LIGAMENT RUPTURE [None]
  - BRONCHITIS [None]
  - FALL [None]
  - PNEUMONIA [None]
  - ARTHRALGIA [None]
  - PAIN [None]
  - CONTUSION [None]
  - ARTHROPATHY [None]
  - WEIGHT DECREASED [None]
  - OEDEMA PERIPHERAL [None]
  - GAIT DISTURBANCE [None]
  - GINGIVAL BLISTER [None]
  - DECREASED APPETITE [None]
  - SENSATION OF HEAVINESS [None]
